FAERS Safety Report 6380178-3 (Version None)
Quarter: 2009Q3

REPORT INFORMATION
  Report Type: 
  Country: None (occurrence: None)
  Receive Date: 20090929
  Receipt Date: 20090921
  Transmission Date: 20100115
  Serious: No
  Sender: FDA-Public Use
  Company Number: US-ELI_LILLY_AND_COMPANY-US200907004202

PATIENT
  Sex: Female
  Weight: 81.633 kg

DRUGS (9)
  1. BYETTA [Suspect]
     Indication: TYPE 2 DIABETES MELLITUS
     Dosage: 5 UG, 2/D
     Route: 058
     Dates: start: 20080101, end: 20080101
  2. BYETTA [Suspect]
     Dosage: 10 UG, 2/D
     Route: 058
     Dates: start: 20080101
  3. GLUCOPHAGE [Concomitant]
     Indication: TYPE 2 DIABETES MELLITUS
     Dosage: 1000 MG, 2/D
  4. ACTOS [Concomitant]
     Indication: TYPE 2 DIABETES MELLITUS
     Dosage: 45 MG, EACH MORNING
  5. GLYBURIDE [Concomitant]
     Dosage: 5 MG, 2/D
  6. ALLOPURINOL [Concomitant]
     Dosage: 100 MG, DAILY (1/D)
  7. LISINOPRIL [Concomitant]
     Dosage: 10 MG, DAILY (1/D)
  8. PREVACID [Concomitant]
     Dosage: 30 MG, DAILY (1/D)
  9. DARVOCET [Concomitant]
     Dosage: 100 MG, EACH EVENING

REACTIONS (4)
  - BACK PAIN [None]
  - BLOOD GLUCOSE INCREASED [None]
  - CONSTIPATION [None]
  - FUNGAL INFECTION [None]
